FAERS Safety Report 16846589 (Version 2)
Quarter: 2019Q4

REPORT INFORMATION
  Report Type: Report from Study
  Country: US (occurrence: US)
  Receive Date: 20190924
  Receipt Date: 20191022
  Transmission Date: 20200122
  Serious: Yes (Other)
  Sender: FDA-Public Use
  Company Number: PHEH2019US039150

PATIENT
  Age: 56 Year
  Sex: Female

DRUGS (1)
  1. GILENYA [Suspect]
     Active Substance: FINGOLIMOD HYDROCHLORIDE
     Indication: RELAPSING MULTIPLE SCLEROSIS
     Dosage: 0.5 MG, QD
     Route: 048
     Dates: start: 20150101

REACTIONS (4)
  - Blood pressure abnormal [Recovering/Resolving]
  - Sleep apnoea syndrome [Unknown]
  - Multiple endocrine neoplasia [Not Recovered/Not Resolved]
  - Eye disorder [Unknown]

NARRATIVE: CASE EVENT DATE: 20150101
